FAERS Safety Report 7121869-6 (Version None)
Quarter: 2010Q4

REPORT INFORMATION
  Report Type: 
  Country: None (occurrence: None)
  Receive Date: 20101124
  Receipt Date: 20101115
  Transmission Date: 20110411
  Serious: Yes (Death)
  Sender: FDA-Public Use
  Company Number: CA-ROCHE-742398

PATIENT
  Sex: Male
  Weight: 86.2 kg

DRUGS (7)
  1. BEVACIZUMAB [Suspect]
     Indication: COLORECTAL CANCER
     Dosage: FORM: INFUSION
     Route: 042
     Dates: start: 20100526, end: 20100720
  2. ONDANSETRON [Concomitant]
  3. LOPERAMIDE [Concomitant]
  4. PROCHLORPERAZINE [Concomitant]
  5. SENOKOT [Concomitant]
  6. DOCUSATE SODIUM [Concomitant]
  7. LACTULOSE [Concomitant]

REACTIONS (1)
  - DEATH [None]
